FAERS Safety Report 6167411-8 (Version None)
Quarter: 2009Q2

REPORT INFORMATION
  Report Type: 
  Country: None (occurrence: None)
  Receive Date: 20090424
  Receipt Date: 20090415
  Transmission Date: 20091009
  Serious: Yes (Other)
  Sender: FDA-Public Use
  Company Number: GB-JNJFOC-20090404390

PATIENT
  Age: 85 Year
  Weight: 57.5 kg

DRUGS (6)
  1. TOPAMAX [Suspect]
     Indication: TREMOR
     Route: 048
  2. ASPIRIN [Concomitant]
     Route: 065
  3. DILTIAZEM [Concomitant]
     Route: 065
  4. RAMIPRIL [Concomitant]
     Route: 065
  5. SIMVASTATIN [Concomitant]
     Route: 065
  6. SINEMET [Concomitant]
     Route: 065

REACTIONS (2)
  - CONFUSIONAL STATE [None]
  - JOINT SWELLING [None]
